FAERS Safety Report 5891807-2 (Version None)
Quarter: 2008Q3

REPORT INFORMATION
  Report Type: 
  Country: None (occurrence: None)
  Receive Date: 20080922
  Receipt Date: 20080910
  Transmission Date: 20090109
  Serious: Yes (Death, Hospitalization)
  Sender: FDA-Public Use
  Company Number: US-ELI_LILLY_AND_COMPANY-US200809002878

PATIENT
  Age: 53 Year
  Sex: Male

DRUGS (1)
  1. ZYPREXA [Suspect]
     Indication: SCHIZOPHRENIA
     Dosage: 30 MG, DAILY (1/D)

REACTIONS (4)
  - DRUG LEVEL INCREASED [None]
  - HOSPITALISATION [None]
  - INTRACARDIAC THROMBUS [None]
  - OVERDOSE [None]
